FAERS Safety Report 22400116 (Version 1)
Quarter: 2023Q2

REPORT INFORMATION
  Report Type: Spontaneous
  Country: US (occurrence: None)
  Receive Date: 20230601
  Receipt Date: 20230601
  Transmission Date: 20230721
  Serious: No
  Sender: FDA-Public Use
  Company Number: None

PATIENT
  Age: 21 Year
  Sex: Female
  Weight: 68.85 kg

DRUGS (1)
  1. SERTRALINE [Suspect]
     Active Substance: SERTRALINE HYDROCHLORIDE
     Indication: Depression

REACTIONS (4)
  - Binge eating [None]
  - Emotional disorder [None]
  - Feeling of despair [None]
  - Self esteem decreased [None]
